FAERS Safety Report 25087885 (Version 2)
Quarter: 2025Q2

REPORT INFORMATION
  Report Type: Report from Study
  Country: US (occurrence: US)
  Receive Date: 20250318
  Receipt Date: 20250620
  Transmission Date: 20250717
  Serious: Yes (Congenital Anomaly, Other)
  Sender: GILEAD
  Company Number: US-GILEAD-2025-0707370

PATIENT
  Sex: Male

DRUGS (2)
  1. BICTEGRAVIR\EMTRICITABINE\TENOFOVIR ALAFENAMIDE [Suspect]
     Active Substance: BICTEGRAVIR\EMTRICITABINE\TENOFOVIR ALAFENAMIDE
     Indication: HIV infection
     Dosage: 275 MG, QD
     Route: 064
     Dates: start: 20250306
  2. DOVATO [Suspect]
     Active Substance: DOLUTEGRAVIR SODIUM\LAMIVUDINE
     Indication: HIV infection
     Dosage: 350 MG, QD
     Route: 064
     Dates: start: 20220822, end: 20250306

REACTIONS (4)
  - Hypoplastic left heart syndrome [Unknown]
  - Foetal cardiac disorder [Unknown]
  - Premature baby [Recovered/Resolved]
  - Foetal exposure during pregnancy [Recovered/Resolved]
